FAERS Safety Report 12852644 (Version 5)
Quarter: 2017Q1

REPORT INFORMATION
  Report Type: Report from Study
  Country: US (occurrence: US)
  Receive Date: 20161017
  Receipt Date: 20170117
  Transmission Date: 20170428
  Serious: Yes (Life-Threatening, Hospitalization, Other)
  Sender: FDA-Public Use
  Company Number: US-GILEAD-2016-0237751

PATIENT
  Age: 44 Year
  Sex: Female
  Weight: 52.15 kg

DRUGS (5)
  1. AMBRISENTAN [Suspect]
     Active Substance: AMBRISENTAN
     Indication: PRODUCT USED FOR UNKNOWN INDICATION
     Dosage: 5 MG, QD
     Route: 065
     Dates: start: 20160315
  2. GABAPENTIN. [Suspect]
     Active Substance: GABAPENTIN
     Indication: PRODUCT USED FOR UNKNOWN INDICATION
     Dosage: UNK
     Route: 065
  3. ORENITRAM [Suspect]
     Active Substance: TREPROSTINIL
     Indication: PULMONARY ARTERIAL HYPERTENSION
     Dosage: 2.5 MG, BID
     Route: 048
     Dates: start: 20160624
  4. ORENITRAM [Suspect]
     Active Substance: TREPROSTINIL
     Dosage: 5 UNK, UNK
     Route: 048
  5. AMBRISENTAN [Suspect]
     Active Substance: AMBRISENTAN
     Dosage: 10 MG, QD
     Route: 065

REACTIONS (8)
  - Malaise [Unknown]
  - Sickle cell anaemia with crisis [Not Recovered/Not Resolved]
  - Mechanical ventilation [Unknown]
  - Weight decreased [Unknown]
  - Blood count abnormal [Unknown]
  - Sickle cell anaemia with crisis [Unknown]
  - Abasia [Unknown]
  - Muscular weakness [Unknown]

NARRATIVE: CASE EVENT DATE: 201609
